FAERS Safety Report 5285234-9 (Version None)
Quarter: 2007Q1

REPORT INFORMATION
  Report Type: 
  Country: None (occurrence: None)
  Receive Date: 20070328
  Receipt Date: 20070313
  Transmission Date: 20070707
  Serious: Yes (Hospitalization)
  Sender: FDA-Public Use
  Company Number: 238858

PATIENT
  Age: 64 Year
  Sex: Male

DRUGS (6)
  1. AVASTIN [Suspect]
     Indication: COLORECTAL CANCER
     Dosage: 600 MG, Q3W; INTRAVENOUS
     Route: 042
     Dates: start: 20060808
  2. CAPECITABINE (CAPECITABINE) [Suspect]
     Indication: COLORECTAL CANCER
     Dosage: 4000 MG, BID; ORAL
     Route: 048
     Dates: start: 20060807
  3. OXALIPLATIN [Suspect]
     Indication: COLORECTAL CANCER
     Dosage: 260 MG, Q3W; INTRAVENOUS
     Route: 042
     Dates: start: 20060808, end: 20061127
  4. MARCUMAR [Concomitant]
  5. SOTALOL HYDROCHLORIDE [Concomitant]
  6. IBUPROFEN [Concomitant]

REACTIONS (2)
  - ABDOMINAL ABSCESS [None]
  - DIARRHOEA [None]
